FAERS Safety Report 4918571-5 (Version None)
Quarter: 2006Q1

REPORT INFORMATION
  Report Type: 
  Country: None (occurrence: None)
  Receive Date: 20060217
  Receipt Date: 20060217
  Transmission Date: 20060701
  Serious: Yes (Life-Threatening, Hospitalization)
  Sender: FDA-Public Use
  Company Number: None

PATIENT
  Age: 78 Year
  Sex: Male
  Weight: 85 kg

DRUGS (1)
  1. AUGMENTIN '125' [Suspect]
     Dosage: 875 MG BID PO
     Route: 048
     Dates: start: 20060126, end: 20060205

REACTIONS (12)
  - ACIDOSIS [None]
  - BLOOD CHLORIDE INCREASED [None]
  - BLOOD SODIUM INCREASED [None]
  - CHRONIC OBSTRUCTIVE PULMONARY DISEASE [None]
  - CLOSTRIDIUM COLITIS [None]
  - DEHYDRATION [None]
  - DISSEMINATED INTRAVASCULAR COAGULATION [None]
  - HYPOTENSION [None]
  - PLATELET COUNT DECREASED [None]
  - RENAL FAILURE ACUTE [None]
  - RENAL TUBULAR NECROSIS [None]
  - SEPSIS [None]
